FAERS Safety Report 8480775 (Version 2)
Quarter: 2013Q2

REPORT INFORMATION
  Report Type: Spontaneous
  Country: US (occurrence: US)
  Receive Date: 20120328
  Receipt Date: 20130521
  Transmission Date: 20140414
  Serious: Yes (Other)
  Sender: FDA-Public Use
  Company Number: US-PFIZER INC-2012074459

PATIENT
  Age: 47 Year
  Sex: Male

DRUGS (1)
  1. DILANTIN-125 [Suspect]
     Dosage: UNK

REACTIONS (2)
  - Cognitive disorder [Unknown]
  - Drug hypersensitivity [Unknown]
